FAERS Safety Report 5097315-3 (Version None)
Quarter: 2006Q3

REPORT INFORMATION
  Report Type: 
  Country: None (occurrence: None)
  Receive Date: 20060906
  Receipt Date: 20060824
  Transmission Date: 20061208
  Serious: Yes (Death, Life-Threatening)
  Sender: FDA-Public Use
  Company Number: US-GLAXOSMITHKLINE-A0618006A

PATIENT
  Age: 6 Year
  Sex: Male
  Weight: 22.5 kg

DRUGS (6)
  1. ADVAIR DISKUS 100/50 [Suspect]
     Indication: ASTHMA
     Dosage: 1PUFF TWICE PER DAY
     Route: 055
  2. PRILOSEC [Concomitant]
  3. SINGULAIR [Concomitant]
     Route: 048
     Dates: start: 20020121
  4. NASACORT [Concomitant]
     Dosage: 2SPR PER DAY
  5. ZYRTEC [Concomitant]
     Dosage: 5ML PER DAY
     Route: 048
     Dates: start: 20010723
  6. ELIDEL [Concomitant]
     Dates: start: 20050613

REACTIONS (1)
  - ASTHMA [None]
